FAERS Safety Report 5805817-4 (Version None)
Quarter: 2008Q3

REPORT INFORMATION
  Report Type: 
  Country: None (occurrence: None)
  Receive Date: 20080708
  Receipt Date: 20080708
  Transmission Date: 20090109
  Serious: Yes (Hospitalization)
  Sender: FDA-Public Use
  Company Number: None

PATIENT
  Age: 61 Year
  Sex: Female
  Weight: 80.7403 kg

DRUGS (1)
  1. AMBIEN [Suspect]
     Indication: INSOMNIA
     Dosage: 10MG QHS PO
     Route: 048
     Dates: start: 20070726, end: 20080522

REACTIONS (9)
  - CARPAL TUNNEL SYNDROME [None]
  - CEREBROVASCULAR ACCIDENT [None]
  - CHEST PAIN [None]
  - CUBITAL TUNNEL SYNDROME [None]
  - DYSAESTHESIA [None]
  - IMPAIRED WORK ABILITY [None]
  - INTERVERTEBRAL DISC PROTRUSION [None]
  - NEUROPATHY PERIPHERAL [None]
  - RADICULOPATHY [None]
